FAERS Safety Report 12177955 (Version 2)
Quarter: 2016Q1

REPORT INFORMATION
  Report Type: Spontaneous
  Country: IT (occurrence: IT)
  Receive Date: 20160315
  Receipt Date: 20160325
  Transmission Date: 20160526
  Serious: Yes (Other)
  Sender: FDA-Public Use
  Company Number: IT-ROCHE-1725758

PATIENT
  Age: 48 Year
  Sex: Male

DRUGS (2)
  1. IPNOVEL [Suspect]
     Active Substance: MIDAZOLAM\MIDAZOLAM HYDROCHLORIDE
     Indication: SEDATION
     Dosage: 5 MG/ML 1 VIAL CONTAINING 1 ML
     Route: 042
  2. VALIUM [Suspect]
     Active Substance: DIAZEPAM
     Indication: SEDATION
     Dosage: ^10 MG/2 ML -3 VIALS CONTAINING 2 ML
     Route: 042

REACTIONS (1)
  - Sedation [Recovering/Resolving]

NARRATIVE: CASE EVENT DATE: 20151108
